FAERS Safety Report 18523359 (Version 6)
Quarter: 2022Q3

REPORT INFORMATION
  Report Type: Report from Study
  Country: US (occurrence: US)
  Receive Date: 20201119
  Receipt Date: 20220712
  Transmission Date: 20221027
  Serious: Yes (Hospitalization, Other)
  Sender: FDA-Public Use
  Company Number: US-NOVARTISPH-NVSC2020US298954

PATIENT
  Age: 63 Year
  Sex: Female

DRUGS (36)
  1. LUTATHERA [Suspect]
     Active Substance: LUTETIUM OXODOTREOTIDE LU-177
     Indication: Gastroenteropancreatic neuroendocrine tumour disease
     Dosage: 195 MCI
     Route: 065
     Dates: start: 20191105
  2. LUTATHERA [Suspect]
     Active Substance: LUTETIUM OXODOTREOTIDE LU-177
     Dosage: 196 MCI
     Route: 065
     Dates: start: 20200107
  3. LUTATHERA [Suspect]
     Active Substance: LUTETIUM OXODOTREOTIDE LU-177
     Dosage: 208 MCI
     Route: 065
     Dates: start: 20200306
  4. LUTATHERA [Suspect]
     Active Substance: LUTETIUM OXODOTREOTIDE LU-177
     Dosage: 208 MCI
     Route: 065
     Dates: start: 20200506
  5. SANDOSTATIN [Concomitant]
     Active Substance: OCTREOTIDE ACETATE
     Indication: Neuroendocrine tumour
     Dosage: UNK
     Route: 058
     Dates: start: 201203, end: 2019
  6. ACETAMINOPHEN [Concomitant]
     Active Substance: ACETAMINOPHEN
     Indication: Pain
     Dosage: UNK
     Route: 048
     Dates: start: 20151228
  7. ATROPINE\DIPHENOXYLATE [Concomitant]
     Active Substance: ATROPINE\DIPHENOXYLATE
     Indication: Diarrhoea
     Dosage: UNK
     Route: 048
     Dates: start: 20161111
  8. ASPIRIN [Concomitant]
     Active Substance: ASPIRIN
     Indication: Anticoagulant therapy
     Dosage: UNK
     Route: 048
     Dates: start: 2019
  9. ATORVASTATIN [Concomitant]
     Active Substance: ATORVASTATIN
     Indication: Blood cholesterol increased
     Dosage: UNK
     Route: 048
     Dates: start: 2019
  10. SSD [Concomitant]
     Active Substance: SILVER SULFADIAZINE
     Indication: Antibiotic therapy
     Dosage: UNK
     Route: 061
     Dates: start: 20200514
  11. METOPROLOL SUCCINATE [Concomitant]
     Active Substance: METOPROLOL SUCCINATE
     Indication: Hypertension
     Dosage: UNK
     Route: 048
     Dates: start: 20200516
  12. VITAMIN D [Concomitant]
     Active Substance: VITAMIN D NOS
     Indication: Nutritional supplementation
     Dosage: UNK
     Route: 048
     Dates: start: 20200520
  13. EPINEPHRINE [Concomitant]
     Active Substance: EPINEPHRINE
     Indication: Infusion related reaction
     Dosage: UNK
     Route: 030
     Dates: start: 20200609
  14. CALCIUM CHLORIDE\POTASSIUM CHLORIDE\SODIUM ACETATE\SODIUM CHLORIDE [Concomitant]
     Active Substance: CALCIUM CHLORIDE\POTASSIUM CHLORIDE\SODIUM ACETATE\SODIUM CHLORIDE
     Indication: Nutritional supplementation
     Dosage: UNK
     Route: 042
     Dates: start: 20200609
  15. OXYCODONE [Concomitant]
     Active Substance: OXYCODONE
     Indication: Breakthrough pain
     Dosage: UNK
     Route: 048
     Dates: start: 20170202
  16. OXYCODONE [Concomitant]
     Active Substance: OXYCODONE
     Dosage: UNK
     Route: 048
     Dates: start: 20200610
  17. GUAR GUM [Concomitant]
     Active Substance: GUAR GUM
     Indication: Nutritional supplementation
     Dosage: UNK
     Route: 048
     Dates: start: 20200611
  18. VITAMIN C [Concomitant]
     Active Substance: ASCORBIC ACID
     Indication: Nutritional supplementation
     Dosage: UNK
     Route: 048
     Dates: start: 20200706
  19. FERROUS SULFATE [Concomitant]
     Active Substance: FERROUS SULFATE
     Indication: Nutritional supplementation
     Dosage: UNK
     Route: 048
     Dates: start: 20200706
  20. EVEROLIMUS [Concomitant]
     Active Substance: EVEROLIMUS
     Indication: Product used for unknown indication
     Dosage: UNK
     Route: 048
     Dates: start: 20220401
  21. FAMOTIDINE [Concomitant]
     Active Substance: FAMOTIDINE
     Indication: Dyspepsia
     Dosage: UNK
     Route: 048
     Dates: start: 20201122
  22. OXYBUTYNIN [Concomitant]
     Active Substance: OXYBUTYNIN
     Indication: Bladder spasm
     Dosage: UNK
     Route: 048
     Dates: start: 20201221, end: 20210222
  23. AMLODIPINE [Concomitant]
     Active Substance: AMLODIPINE BESYLATE
     Indication: Hypertension
     Dosage: UNK
     Route: 048
     Dates: start: 20210603
  24. FLUTICASONE PROPIONATE [Concomitant]
     Active Substance: FLUTICASONE PROPIONATE
     Indication: Hypersensitivity
     Dosage: UNK
     Route: 045
     Dates: start: 20210614
  25. LANREOTIDE [Concomitant]
     Active Substance: LANREOTIDE
     Indication: Gastroenteropancreatic neuroendocrine tumour disease
     Dosage: UNK
     Route: 058
     Dates: start: 20210614
  26. SOLIFENACIN [Concomitant]
     Active Substance: SOLIFENACIN
     Indication: Bladder spasm
     Dosage: UNK
     Route: 048
     Dates: start: 20210621
  27. BUTALBITAL, ACETAMINOPHEN, AND CAFFEINE [Concomitant]
     Active Substance: ACETAMINOPHEN\BUTALBITAL\CAFFEINE
     Indication: Prophylaxis
     Dosage: UNK
     Route: 048
     Dates: start: 20210805
  28. IPRATROPIUM [Concomitant]
     Active Substance: IPRATROPIUM
     Indication: Seasonal allergy
     Dosage: UNK
     Route: 045
     Dates: start: 20210805
  29. MECLIZINE [Concomitant]
     Active Substance: MECLIZINE HYDROCHLORIDE
     Indication: Vertigo
     Dosage: UNK
     Route: 048
     Dates: start: 20210805
  30. VITAMINS [Concomitant]
     Active Substance: VITAMINS
     Indication: Vitamin supplementation
     Dosage: UNK
     Route: 048
     Dates: start: 20210805
  31. FENTANYL [Concomitant]
     Active Substance: FENTANYL
     Indication: Pain
     Dosage: UNK
     Route: 042
     Dates: start: 20200522, end: 20220225
  32. FENTANYL [Concomitant]
     Active Substance: FENTANYL
     Dosage: UNK
     Route: 062
     Dates: start: 20200608
  33. CHOLESTYRAMINE [Concomitant]
     Active Substance: CHOLESTYRAMINE
     Indication: Blood cholesterol increased
     Dosage: UNK
     Route: 048
     Dates: start: 20210810
  34. CHOLESTYRAMINE [Concomitant]
     Active Substance: CHOLESTYRAMINE
     Indication: Surgery
  35. NITROGLYCERIN [Concomitant]
     Active Substance: NITROGLYCERIN
     Indication: Chest pain
     Dosage: UNK
     Route: 048
     Dates: start: 20210810
  36. HYDROMORPHONE [Concomitant]
     Active Substance: HYDROMORPHONE
     Indication: Analgesic therapy
     Dosage: UNK
     Route: 048
     Dates: start: 20210813

REACTIONS (10)
  - Small intestinal obstruction [Recovered/Resolved]
  - Hydronephrosis [Recovered/Resolved]
  - Abdominal distension [Recovered/Resolved]
  - Flushing [Recovered/Resolved]
  - Abdominal pain [Not Recovered/Not Resolved]
  - Anaemia [Recovering/Resolving]
  - Urinary tract infection [Recovered/Resolved]
  - Asthenia [Recovered/Resolved]
  - Vomiting [Not Recovered/Not Resolved]
  - Nausea [Not Recovered/Not Resolved]

NARRATIVE: CASE EVENT DATE: 20191105
